FAERS Safety Report 7968644-8 (Version None)
Quarter: 2011Q4

REPORT INFORMATION
  Report Type: 
  Country: None (occurrence: None)
  Receive Date: 20111209
  Receipt Date: 20111206
  Transmission Date: 20120403
  Serious: Yes (Other)
  Sender: FDA-Public Use
  Company Number: US-GLAXOSMITHKLINE-A0949718A

PATIENT
  Age: 84 Year
  Sex: Female

DRUGS (9)
  1. POTASSIUM ACETATE [Concomitant]
  2. SPIRIVA [Concomitant]
  3. SEREVENT [Suspect]
     Indication: CHRONIC OBSTRUCTIVE PULMONARY DISEASE
     Dosage: 1PUFF TWICE PER DAY
     Route: 055
     Dates: start: 20110201
  4. COUMADIN [Concomitant]
  5. FUROSEMIDE [Concomitant]
  6. PAROXETINE HCL [Concomitant]
  7. LOSARTAN POTASSIUM [Concomitant]
  8. DYNACIRC [Concomitant]
  9. LISINOPRIL [Concomitant]

REACTIONS (4)
  - OVERDOSE [None]
  - ATRIAL FIBRILLATION [None]
  - PRODUCT QUALITY ISSUE [None]
  - MITRAL VALVE PROLAPSE [None]
